FAERS Safety Report 8186738-1 (Version None)
Quarter: 2012Q1

REPORT INFORMATION
  Report Type: 
  Country: None (occurrence: None)
  Receive Date: 20120301
  Receipt Date: 20120221
  Transmission Date: 20120608
  Serious: Yes (Disabling, Other)
  Sender: FDA-Public Use
  Company Number: ACO_29468_2012

PATIENT
  Age: 42 Year
  Sex: Female

DRUGS (6)
  1. CLARITIN /00413701/ (GLICLAZIDE) [Concomitant]
  2. PRILOSEC [Concomitant]
  3. AMPYRA [Suspect]
     Indication: TREMOR
     Dosage: 10MG, BID, ORAL
     Route: 048
     Dates: start: 20120119
  4. NAPROXEN (ALEVE) [Concomitant]
  5. ASPIRIN [Concomitant]
  6. TYLENOL /00020001/ (PARACETAMOL) [Concomitant]

REACTIONS (4)
  - TREMOR [None]
  - DECREASED APPETITE [None]
  - FEELING ABNORMAL [None]
  - ACTIVITIES OF DAILY LIVING IMPAIRED [None]
